FAERS Safety Report 24792672 (Version 4)
Quarter: 2025Q1

REPORT INFORMATION
  Report Type: Spontaneous
  Country: US (occurrence: US)
  Receive Date: 20241231
  Receipt Date: 20250106
  Transmission Date: 20250409
  Serious: Yes (Death, Hospitalization)
  Sender: ROCHE
  Company Number: US-ROCHE-10000167553

PATIENT
  Age: 69 Year
  Sex: Female
  Weight: 80 kg

DRUGS (3)
  1. TNKASE [Suspect]
     Active Substance: TENECTEPLASE
     Indication: Infarction
     Dosage: LAST DOSE 24-DEC-2024
     Route: 042
     Dates: start: 20241224, end: 20241224
  2. TNKASE [Suspect]
     Active Substance: TENECTEPLASE
     Indication: Cerebral artery occlusion
  3. TNKASE [Suspect]
     Active Substance: TENECTEPLASE
     Indication: Thrombotic stroke

REACTIONS (3)
  - Haemorrhagic stroke [Fatal]
  - Off label use [Unknown]
  - Headache [Unknown]

NARRATIVE: CASE EVENT DATE: 20241224
